FAERS Safety Report 18995741 (Version 8)
Quarter: 2022Q3

REPORT INFORMATION
  Report Type: Report from Study
  Country: IL (occurrence: IL)
  Receive Date: 20210311
  Receipt Date: 20220824
  Transmission Date: 20221027
  Serious: Yes (Hospitalization, Other)
  Sender: FDA-Public Use
  Company Number: IL-ABBVIE-21K-082-3806186-00

PATIENT
  Sex: Male
  Weight: 83 kg

DRUGS (9)
  1. CARBIDOPA\LEVODOPA [Suspect]
     Active Substance: CARBIDOPA\LEVODOPA
     Indication: Parkinson^s disease
     Dosage: MD 18ML, CD 5ML/HR, EXTRA DOSE 2.5ML PER DOSE, DAILY TREATMENT DURATION 16 HOURS
     Route: 050
     Dates: start: 20210202, end: 2021
  2. CARBIDOPA\LEVODOPA [Suspect]
     Active Substance: CARBIDOPA\LEVODOPA
     Dosage: MD(ML) 15.0 , ADDITIONAL TUBE FILING (ML) 3.0, CD (ML/H) 5.0 , EXTRA DOSAGE (ML) 2.5.
     Route: 050
     Dates: start: 2021
  3. CARBIDOPA\LEVODOPA [Suspect]
     Active Substance: CARBIDOPA\LEVODOPA
     Dosage: MORNING DOSAGE(ML) 18.0, CONTINUOUS DOSAGE (ML/H) 4.5, EXTRA?DOSAGE (ML) 2.5
     Route: 050
  4. LEVOTHYROXINE [Concomitant]
     Active Substance: LEVOTHYROXINE
     Indication: Hypothyroidism
     Dates: start: 20170313
  5. LOSARTAN POTASSIUM [Concomitant]
     Active Substance: LOSARTAN POTASSIUM
     Indication: Hypertension
     Dates: start: 20190219
  6. TORVA [Concomitant]
     Indication: Lipid metabolism disorder
     Dates: start: 20210124
  7. BISOPROLOL FUMARATE [Concomitant]
     Active Substance: BISOPROLOL FUMARATE
     Indication: Hypertension
     Dates: start: 20171119
  8. CARBIDOPA\LEVODOPA [Concomitant]
     Active Substance: CARBIDOPA\LEVODOPA
     Indication: Parkinson^s disease
     Dates: start: 20170705, end: 20210202
  9. CARBIDOPA\LEVODOPA [Concomitant]
     Active Substance: CARBIDOPA\LEVODOPA
     Dates: start: 20210202

REACTIONS (16)
  - Muscular weakness [Recovered/Resolved]
  - Hemiparesis [Recovered/Resolved]
  - Paralysis [Recovered/Resolved]
  - Myasthenia gravis [Recovered/Resolved]
  - Dropped head syndrome [Recovered/Resolved]
  - Myasthenia gravis [Recovered/Resolved]
  - Myasthenia gravis [Recovering/Resolving]
  - Skin disorder [Recovering/Resolving]
  - Impaired work ability [Unknown]
  - Device dislocation [Recovered/Resolved]
  - Weight decreased [Unknown]
  - On and off phenomenon [Recovering/Resolving]
  - Dysphagia [Not Recovered/Not Resolved]
  - Constipation [Unknown]
  - Dyskinesia [Recovering/Resolving]
  - Stoma site irritation [Unknown]

NARRATIVE: CASE EVENT DATE: 20210101
